FAERS Safety Report 8378019-8 (Version None)
Quarter: 2012Q2

REPORT INFORMATION
  Report Type: 
  Country: None (occurrence: None)
  Receive Date: 20120522
  Receipt Date: 20120514
  Transmission Date: 20120825
  Serious: Yes (Hospitalization, Other)
  Sender: FDA-Public Use
  Company Number: JP-VERTEX PHARMACEUTICALS INC.-AE-2012-007324

PATIENT
  Age: 64 Year
  Sex: Male

DRUGS (21)
  1. TELAVIC (TELAPREVIR) [Suspect]
     Dates: start: 20120507
  2. PREDNISOLONE [Concomitant]
     Route: 048
     Dates: start: 20120415
  3. TELAVIC (TELAPREVIR) [Suspect]
     Indication: HEPATITIS C
     Route: 048
     Dates: start: 20120319
  4. FLIVAS OD [Concomitant]
     Route: 048
     Dates: start: 20111128
  5. PREDNISOLONE [Concomitant]
     Route: 048
     Dates: start: 20120402
  6. CALBLOCK [Concomitant]
     Route: 048
     Dates: start: 20110530, end: 20120430
  7. PREDNISOLONE [Concomitant]
     Route: 048
     Dates: start: 20120326
  8. TELAVIC (TELAPREVIR) [Suspect]
     Route: 048
     Dates: start: 20120501, end: 20120506
  9. NAUZELIN OD [Concomitant]
     Route: 048
     Dates: start: 20120319
  10. OLOPATADINE HCL [Concomitant]
     Route: 048
     Dates: start: 20120319
  11. PREDNISOLONE [Concomitant]
     Route: 048
     Dates: start: 20120409
  12. PEG-INTRON [Concomitant]
     Route: 048
     Dates: start: 20120319
  13. CANDESARTAN CILEXETIL [Concomitant]
     Route: 048
     Dates: start: 20120416
  14. PREDNISOLONE [Concomitant]
     Route: 051
     Dates: start: 20120321
  15. PREDNISOLONE [Concomitant]
     Route: 048
     Dates: start: 20120323
  16. CANDESARTAN CILEXETIL [Concomitant]
     Route: 048
     Dates: start: 20120202, end: 20120415
  17. BLADDERON [Concomitant]
     Route: 048
     Dates: start: 20120222
  18. URSO 250 [Concomitant]
     Route: 048
     Dates: start: 20120416
  19. RIBAVIRIN [Concomitant]
     Indication: HEPATITIS C
     Route: 048
     Dates: start: 20120319
  20. PREDNISOLONE [Concomitant]
     Route: 048
     Dates: start: 20120329
  21. PREDNISOLONE [Concomitant]
     Route: 048
     Dates: start: 20120423

REACTIONS (2)
  - DIABETES MELLITUS [None]
  - ANAEMIA [None]
